FAERS Safety Report 8784916 (Version 1)
Quarter: 2012Q4

REPORT INFORMATION
  Report Type: 
  Country: US (occurrence: US)
  Receive Date: 20120914
  Receipt Date: 20120914
  Transmission Date: 20130627
  Serious: Yes (Hospitalization, Disabling, Other)
  Sender: FDA-Public Use
  Company Number: US-009507513-1103USA00909

PATIENT

DRUGS (6)
  1. FOSAMAX [Suspect]
     Indication: OSTEOPENIA
     Dosage: 70 mg, QW
     Route: 048
     Dates: start: 200210, end: 201003
  2. FOSAMAX [Suspect]
     Indication: OSTEOPENIA
     Dosage: 70 mg, QW
     Route: 048
     Dates: start: 20100203, end: 20100901
  3. MK-9278 [Concomitant]
     Route: 048
     Dates: start: 1980
  4. ASCORBIC ACID [Concomitant]
     Dates: start: 2003, end: 2010
  5. THERAPY UNSPECIFIED [Concomitant]
     Indication: HYPERTENSION
     Dates: start: 200109, end: 2010
  6. ALENDRONATE SODIUM [Suspect]
     Dosage: 70 mg, qw
     Route: 048
     Dates: start: 20091008

REACTIONS (56)
  - Femur fracture [Recovering/Resolving]
  - Osteoporosis [Not Recovered/Not Resolved]
  - Stress fracture [Not Recovered/Not Resolved]
  - Femur fracture [Not Recovered/Not Resolved]
  - Low turnover osteopathy [Not Recovered/Not Resolved]
  - Cardiac failure congestive [Unknown]
  - Hyponatraemia [Unknown]
  - Arthropathy [Unknown]
  - Chronic lymphocytic leukaemia [Unknown]
  - Cardiovascular disorder [Unknown]
  - Convulsion [Unknown]
  - Spinal compression fracture [Unknown]
  - Spinal disorder [Unknown]
  - Spinal disorder [Unknown]
  - Carpal tunnel syndrome [Unknown]
  - Post procedural haemorrhage [Unknown]
  - Cerebrovascular disorder [Unknown]
  - Meniscus injury [Unknown]
  - Joint adhesion [Unknown]
  - Fall [Unknown]
  - Hyperkalaemia [Unknown]
  - Back disorder [Unknown]
  - Fall [Unknown]
  - Fall [Unknown]
  - Back injury [Unknown]
  - Head injury [Unknown]
  - Joint injury [Unknown]
  - Spinal compression fracture [Unknown]
  - Intervertebral disc degeneration [Unknown]
  - Spinal osteoarthritis [Unknown]
  - Renal cyst [Unknown]
  - Cyst [Unknown]
  - Insomnia [Unknown]
  - Myositis [Unknown]
  - Restless legs syndrome [Unknown]
  - Hypothyroidism [Unknown]
  - Adverse drug reaction [Unknown]
  - Cellulitis [Unknown]
  - Mitral valve incompetence [Unknown]
  - Tricuspid valve incompetence [Unknown]
  - Pulmonary hypertension [Unknown]
  - Aortic arteriosclerosis [Unknown]
  - Aortic stenosis [Unknown]
  - Cardiac murmur [Unknown]
  - Synovial cyst [Unknown]
  - Joint injury [Unknown]
  - Limb injury [Unknown]
  - Arthritis [Unknown]
  - Asthenia [Unknown]
  - Erythema [Unknown]
  - Constipation [Unknown]
  - Oedema peripheral [Unknown]
  - Constipation [Unknown]
  - Myalgia [Unknown]
  - Musculoskeletal pain [Unknown]
  - Pain in extremity [Unknown]
